FAERS Safety Report 12183588 (Version 5)
Quarter: 2017Q4

REPORT INFORMATION
  Report Type: Spontaneous
  Country: US (occurrence: US)
  Receive Date: 20160316
  Receipt Date: 20171108
  Transmission Date: 20180320
  Serious: No
  Sender: FDA-Public Use
  Company Number: US-PFIZER INC-2016102326

PATIENT
  Age: 73 Year
  Sex: Female
  Weight: 63.39 kg

DRUGS (2)
  1. METOPROLOL. [Concomitant]
     Active Substance: METOPROLOL
     Indication: HYPERTENSION
     Dosage: UNK
  2. XELJANZ [Suspect]
     Active Substance: TOFACITINIB CITRATE
     Indication: RHEUMATOID ARTHRITIS
     Dosage: 5 MG, 2X/DAY
     Route: 048
     Dates: start: 2015

REACTIONS (8)
  - Weight decreased [Unknown]
  - Dizziness [Unknown]
  - Blood pressure abnormal [Unknown]
  - Body height decreased [Unknown]
  - Sinus disorder [Recovered/Resolved]
  - Feeling abnormal [Unknown]
  - Tooth infection [Unknown]
  - Fatigue [Unknown]
